FAERS Safety Report 17717846 (Version 1)
Quarter: 2020Q2

REPORT INFORMATION
  Report Type: Spontaneous
  Country: US (occurrence: US)
  Receive Date: 20200428
  Receipt Date: 20200428
  Transmission Date: 20200714
  Serious: Yes (Other)
  Sender: FDA-Public Use
  Company Number: NVSC2020US110886

PATIENT
  Age: 52 Year
  Sex: Male

DRUGS (1)
  1. TRAMETINIB [Suspect]
     Active Substance: TRAMETINIB
     Indication: ERDHEIM-CHESTER DISEASE
     Dosage: 0.5 MG, QD
     Route: 048

REACTIONS (2)
  - Uveitis [Unknown]
  - Product use in unapproved indication [Unknown]
